FAERS Safety Report 11772909 (Version 1)
Quarter: 2015Q4

REPORT INFORMATION
  Report Type: Spontaneous
  Country: DE (occurrence: DE)
  Receive Date: 20151124
  Receipt Date: 20151124
  Transmission Date: 20160304
  Serious: Yes (Other)
  Sender: FDA-Public Use
  Company Number: DE-BAYER-2015-474170

PATIENT
  Age: 67 Year
  Sex: Male

DRUGS (7)
  1. ULTRAVIST [Interacting]
     Active Substance: IOPROMIDE
     Dosage: 46 ML, UNK
     Dates: start: 20121130
  2. IMERON [Interacting]
     Active Substance: IOMEPROL
     Indication: ARTERIOGRAM CORONARY
     Dosage: 110 ML, UNK
     Dates: start: 20130524
  3. IMERON [Interacting]
     Active Substance: IOMEPROL
     Indication: ARTERIOGRAM CORONARY
     Dosage: 85 ML, UNK
     Dates: start: 20130313
  4. LENVATINIB [Interacting]
     Active Substance: LENVATINIB
     Indication: PAPILLARY THYROID CANCER
     Dosage: UNK
     Dates: start: 20121009, end: 20121025
  5. LENVATINIB [Interacting]
     Active Substance: LENVATINIB
     Indication: PAPILLARY THYROID CANCER
     Dosage: UNK
     Dates: start: 20120410, end: 20130115
  6. ULTRAVIST [Suspect]
     Active Substance: IOPROMIDE
     Dosage: 46 ML, UNK
     Dates: start: 20120914
  7. IMERON [Interacting]
     Active Substance: IOMEPROL
     Indication: ARTERIOGRAM CORONARY
     Dosage: 140 ML, UNK
     Dates: start: 20121016

REACTIONS (3)
  - Nephropathy toxic [None]
  - Labelled drug-drug interaction medication error [None]
  - Angina unstable [None]
